FAERS Safety Report 10655272 (Version 1)
Quarter: 2014Q4

REPORT INFORMATION
  Report Type: Spontaneous
  Country: CH (occurrence: None)
  Receive Date: 20141212
  Receipt Date: 20141212
  Transmission Date: 20150529
  Serious: Yes (Other)
  Sender: FDA-Public Use
  Company Number: 20140787

PATIENT
  Age: 26 Year
  Sex: Female

DRUGS (1)
  1. FERINJECT [Suspect]
     Active Substance: FERRIC CARBOXYMALTOSE
     Indication: IRON DEFICIENCY ANAEMIA
     Dosage: 1000 MG IN 250 ML, NACL INTRAVENOUS DRIP
     Route: 041
     Dates: start: 20140307, end: 20140307

REACTIONS (5)
  - Nausea [None]
  - Dyspnoea [None]
  - Oral dysaesthesia [None]
  - Anxiety [None]
  - Hyperventilation [None]

NARRATIVE: CASE EVENT DATE: 20140307
